FAERS Safety Report 18600768 (Version 1)
Quarter: 2020Q4

REPORT INFORMATION
  Report Type: Spontaneous
  Country: BR (occurrence: BR)
  Receive Date: 20201210
  Receipt Date: 20201210
  Transmission Date: 20210114
  Serious: Yes (Other)
  Sender: FDA-Public Use
  Company Number: BR-NOVOPROD-771635

PATIENT
  Age: 50 Year
  Sex: Female
  Weight: 74.8 kg

DRUGS (10)
  1. LAMOTRIGINE. [Concomitant]
     Active Substance: LAMOTRIGINE
     Dosage: 50 MG, BID
     Route: 065
  2. LAMOTRIGINE. [Concomitant]
     Active Substance: LAMOTRIGINE
     Dosage: 50 MG, BID (DOSE REDUCED)
     Route: 065
  3. HYDROCHLOROTHIAZIDE. [Concomitant]
     Active Substance: HYDROCHLOROTHIAZIDE
     Indication: PRODUCT USED FOR UNKNOWN INDICATION
     Dosage: 25 MG, QD
     Route: 065
  4. SAXENDA [Suspect]
     Active Substance: LIRAGLUTIDE
     Dosage: 3 MG, QD
     Route: 065
  5. LAMOTRIGINE. [Concomitant]
     Active Substance: LAMOTRIGINE
     Dosage: UNK
     Route: 065
  6. CLONAZEPAN [Concomitant]
     Active Substance: CLONAZEPAM
     Indication: PRODUCT USED FOR UNKNOWN INDICATION
     Dosage: 2 MG, QD
     Route: 065
  7. TRAZODONE [Concomitant]
     Active Substance: TRAZODONE HYDROCHLORIDE
     Indication: PRODUCT USED FOR UNKNOWN INDICATION
     Dosage: 150 MG, QD
     Route: 065
  8. LOSARTAN. [Concomitant]
     Active Substance: LOSARTAN
     Indication: PRODUCT USED FOR UNKNOWN INDICATION
     Dosage: 50 MG, QD
     Route: 065
  9. LAMOTRIGINE. [Concomitant]
     Active Substance: LAMOTRIGINE
     Dosage: 100 MG, BID (DOSE INCREASED)
     Route: 065
  10. SAXENDA [Suspect]
     Active Substance: LIRAGLUTIDE
     Indication: OVERWEIGHT
     Dosage: 0.6 MG, QD
     Route: 065

REACTIONS (3)
  - Somnolence [Unknown]
  - Treatment noncompliance [Unknown]
  - Seizure [Unknown]
